FAERS Safety Report 8623440 (Version 6)
Quarter: 2013Q1

REPORT INFORMATION
  Report Type: Spontaneous
  Country: DE (occurrence: DE)
  Receive Date: 20120620
  Receipt Date: 20130329
  Transmission Date: 20140127
  Serious: Yes (Hospitalization, Other)
  Sender: FDA-Public Use
  Company Number: DE-ABBOTT-12P-062-0945738-00

PATIENT
  Sex: Female

DRUGS (2)
  1. HUMIRA 40 MG/ 0.8 ML PRE-FILLED SYRINGE [Suspect]
     Indication: CROHN^S DISEASE
     Route: 058
     Dates: start: 20120509, end: 20120623
  2. FENTANYL [Concomitant]
     Indication: PRODUCT USED FOR UNKNOWN INDICATION

REACTIONS (7)
  - Abdominal lymphadenopathy [Unknown]
  - Inflammatory marker increased [Not Recovered/Not Resolved]
  - Gastrointestinal stenosis [Recovering/Resolving]
  - Adhesion [Recovering/Resolving]
  - Gastrointestinal stoma complication [Recovering/Resolving]
  - Impaired healing [Recovering/Resolving]
  - Impaired healing [Not Recovered/Not Resolved]
